FAERS Safety Report 9082246 (Version 1)
Quarter: 2013Q1

REPORT INFORMATION
  Report Type: Report from Study
  Country: US (occurrence: US)
  Receive Date: 20130130
  Receipt Date: 20130130
  Transmission Date: 20140127
  Serious: No
  Sender: FDA-Public Use
  Company Number: US-ABBOTT-12P-163-0981368-00

PATIENT
  Sex: Male
  Weight: 83.54 kg

DRUGS (9)
  1. HUMIRA [Suspect]
     Indication: PSORIASIS
     Route: 058
     Dates: start: 2011, end: 2011
  2. HUMIRA [Suspect]
     Indication: PSORIATIC ARTHROPATHY
  3. GLYBERIDE METFORMIN (NON-ABBOTT) [Concomitant]
     Indication: TYPE 2 DIABETES MELLITUS
  4. ATENOLOL [Concomitant]
     Indication: HEART RATE
  5. LISINOPRIL (NON-ABBOTT) [Concomitant]
     Indication: BLOOD PRESSURE
  6. SIMVASTATIN (NON-ABBOTT) [Concomitant]
     Indication: BLOOD CHOLESTEROL
  7. ZETIA (NON-ABBOTT) [Concomitant]
     Indication: PRODUCT USED FOR UNKNOWN INDICATION
  8. TRICOR [Concomitant]
     Indication: BLOOD CHOLESTEROL
  9. ASPIRIN [Concomitant]
     Indication: PRODUCT USED FOR UNKNOWN INDICATION
     Dosage: 325 MILLIGRAM

REACTIONS (2)
  - Pain in extremity [Not Recovered/Not Resolved]
  - Arthralgia [Not Recovered/Not Resolved]
